FAERS Safety Report 6399547-0 (Version None)
Quarter: 2009Q4

REPORT INFORMATION
  Report Type: 
  Country: None (occurrence: None)
  Receive Date: 20091014
  Receipt Date: 20091009
  Transmission Date: 20100525
  Serious: Yes (Other)
  Sender: FDA-Public Use
  Company Number: AU-WYE-G04594709

PATIENT
  Age: 72 Year
  Sex: Male

DRUGS (1)
  1. PRISTIQ [Suspect]
     Indication: DEPRESSION
     Dosage: 50MG DAILY THEN 100MG DAILY

REACTIONS (4)
  - DECREASED APPETITE [None]
  - FATIGUE [None]
  - NAUSEA [None]
  - SUICIDAL IDEATION [None]
